FAERS Safety Report 6858864-8 (Version None)
Quarter: 2010Q3

REPORT INFORMATION
  Report Type: 
  Country: None (occurrence: None)
  Receive Date: 20100719
  Receipt Date: 20080331
  Transmission Date: 20110219
  Serious: No
  Sender: FDA-Public Use
  Company Number: US-PFIZER INC-2008014616

PATIENT
  Sex: Female
  Weight: 75 kg

DRUGS (8)
  1. CHANTIX [Suspect]
     Indication: SMOKING CESSATION THERAPY
     Route: 048
     Dates: start: 20080204
  2. CYMBALTA [Concomitant]
     Indication: PAIN
  3. ACETYLSALICYLIC ACID [Concomitant]
  4. LISINOPRIL [Concomitant]
     Indication: BLOOD PRESSURE ABNORMAL
  5. CARDIZEM [Concomitant]
     Indication: BLOOD PRESSURE ABNORMAL
  6. MONTELUKAST SODIUM [Concomitant]
     Indication: HYPERSENSITIVITY
  7. VITAMIN C [Concomitant]
  8. CALCIUM [Concomitant]

REACTIONS (4)
  - FEELING ABNORMAL [None]
  - MALAISE [None]
  - NAUSEA [None]
  - PRODUCT QUALITY ISSUE [None]
